FAERS Safety Report 9012825 (Version 1)
Quarter: 2013Q1

REPORT INFORMATION
  Report Type: Spontaneous
  Country: JP (occurrence: JP)
  Receive Date: 20130114
  Receipt Date: 20130114
  Transmission Date: 20140127
  Serious: Yes (Death)
  Sender: FDA-Public Use
  Company Number: JP-ALLERGAN-1300440US

PATIENT
  Age: 75 Year
  Sex: Male

DRUGS (1)
  1. BOTOX [Suspect]
     Indication: MUSCLE SPASMS
     Dosage: 150 UNITS, SINGLE
     Route: 030
     Dates: start: 20121221, end: 20121221

REACTIONS (1)
  - Obstructive airways disorder [Fatal]
